FAERS Safety Report 5067777-6 (Version None)
Quarter: 2006Q3

REPORT INFORMATION
  Report Type: 
  Country: None (occurrence: None)
  Receive Date: 20060802
  Receipt Date: 20060731
  Transmission Date: 20061208
  Serious: Yes (Hospitalization)
  Sender: FDA-Public Use
  Company Number: US-GLAXOSMITHKLINE-A0614179A

PATIENT
  Age: 34 Year
  Sex: Male

DRUGS (3)
  1. PAXIL [Suspect]
     Dosage: 30MG PER DAY
     Route: 048
     Dates: start: 19940101
  2. PAROXETINE HCL [Suspect]
  3. NO CONCURRENT MEDICATION [Concomitant]

REACTIONS (8)
  - CLAVICLE FRACTURE [None]
  - FOAMING AT MOUTH [None]
  - GRAND MAL CONVULSION [None]
  - HEAD BANGING [None]
  - ILL-DEFINED DISORDER [None]
  - LOSS OF CONSCIOUSNESS [None]
  - PARAESTHESIA [None]
  - RIB FRACTURE [None]
